FAERS Safety Report 7701758-6 (Version None)
Quarter: 2011Q3

REPORT INFORMATION
  Report Type: 
  Country: None (occurrence: None)
  Receive Date: 20110822
  Receipt Date: 20110810
  Transmission Date: 20111222
  Serious: Yes (Other)
  Sender: FDA-Public Use
  Company Number: US-BAYER-2011-042316

PATIENT
  Age: 24 Year
  Sex: Female
  Weight: 84 kg

DRUGS (8)
  1. YAZ [Suspect]
     Indication: CONTRACEPTION
     Dosage: UNK
     Dates: start: 20070401, end: 20080301
  2. WELLBUTRIN [Concomitant]
     Indication: DEPRESSION
     Dosage: UNK
     Dates: start: 20070401, end: 20080801
  3. MOTRIN [Concomitant]
     Dosage: UNK UNK, PRN
  4. ADVIL LIQUI-GELS [Concomitant]
     Dosage: UNK UNK, PRN
  5. NAPROXEN (ALEVE) [Concomitant]
     Dosage: UNK UNK, PRN
  6. BUPROPION HYDROCHLORIDE [Concomitant]
     Dosage: 00 UNK, UNK
     Dates: start: 20070601, end: 20070710
  7. LEXAPRO [Concomitant]
  8. YAZ [Suspect]
     Dosage: UNK
     Dates: start: 20090601, end: 20091001

REACTIONS (6)
  - ABDOMINAL PAIN [None]
  - VOMITING [None]
  - CHOLECYSTITIS [None]
  - CHOLELITHIASIS [None]
  - PAIN [None]
  - NAUSEA [None]
